FAERS Safety Report 25122360 (Version 1)
Quarter: 2025Q1

REPORT INFORMATION
  Report Type: Spontaneous
  Country: US (occurrence: US)
  Receive Date: 20250326
  Receipt Date: 20250326
  Transmission Date: 20250409
  Serious: No
  Sender: TAKEDA
  Company Number: US-TAKEDA-2025TUS027743

PATIENT
  Sex: Female

DRUGS (1)
  1. PIOGLITAZONE [Suspect]
     Active Substance: PIOGLITAZONE
     Indication: Product used for unknown indication

REACTIONS (2)
  - Peripheral swelling [Unknown]
  - Pain in extremity [Unknown]
